FAERS Safety Report 21744562 (Version 3)
Quarter: 2022Q4

REPORT INFORMATION
  Report Type: Report from Study
  Country: GB (occurrence: GB)
  Receive Date: 20221218
  Receipt Date: 20221222
  Transmission Date: 20230113
  Serious: Yes (Other)
  Sender: FDA-Public Use
  Company Number: GB-ABBVIE-4240699

PATIENT
  Sex: Female

DRUGS (1)
  1. SKYRIZI [Suspect]
     Active Substance: RISANKIZUMAB-RZAA
     Indication: Psoriasis
     Route: 058
     Dates: start: 20210318

REACTIONS (5)
  - Medical device implantation [Unknown]
  - Complication associated with device [Unknown]
  - Medical device site rash [Recovering/Resolving]
  - Adverse reaction [Recovering/Resolving]
  - Medical device site swelling [Unknown]
